FAERS Safety Report 16950126 (Version 1)
Quarter: 2019Q4

REPORT INFORMATION
  Report Type: Spontaneous
  Country: US (occurrence: US)
  Receive Date: 20191023
  Receipt Date: 20191023
  Transmission Date: 20200122
  Serious: No
  Sender: FDA-Public Use
  Company Number: US-AUROBINDO-AUR-APL-2019-065183

PATIENT
  Sex: Female

DRUGS (2)
  1. AZITHROMYCIN 250 MG TABLETS USP [Suspect]
     Active Substance: AZITHROMYCIN
     Indication: PRODUCT USED FOR UNKNOWN INDICATION
     Dosage: 2 DOSAGE FORM, DAILY (FIRST DAY)
     Route: 065
  2. AZITHROMYCIN 250 MG TABLETS USP [Suspect]
     Active Substance: AZITHROMYCIN
     Dosage: 1 DOSAGE FORM, DAILY (EACH DAY)
     Route: 065

REACTIONS (2)
  - Product package associated injury [Unknown]
  - Product packaging difficult to open [Unknown]
